FAERS Safety Report 8259367-9 (Version None)
Quarter: 2012Q2

REPORT INFORMATION
  Report Type: 
  Country: None (occurrence: None)
  Receive Date: 20120404
  Receipt Date: 20120328
  Transmission Date: 20120825
  Serious: Yes (Hospitalization, Other)
  Sender: FDA-Public Use
  Company Number: US-BAYER-2011-050998

PATIENT
  Age: 17 Year
  Sex: Female
  Weight: 68.027 kg

DRUGS (3)
  1. MULTI-VITAMIN [Concomitant]
     Dosage: UNK
     Route: 048
     Dates: start: 20090113
  2. YAZ [Suspect]
     Dosage: UNK
     Dates: start: 20080901
  3. IBUPROFEN [Concomitant]
     Dosage: UNK
     Route: 048
     Dates: start: 20090113

REACTIONS (11)
  - ANXIETY [None]
  - GALLBLADDER DISORDER [None]
  - FLATULENCE [None]
  - DYSPEPSIA [None]
  - DIARRHOEA [None]
  - DEPRESSION [None]
  - ABDOMINAL DISTENSION [None]
  - CONSTIPATION [None]
  - SCAR [None]
  - CHOLECYSTITIS ACUTE [None]
  - PAIN [None]
